FAERS Safety Report 9338882 (Version 1)
Quarter: 2013Q2

REPORT INFORMATION
  Report Type: Spontaneous
  Country: US (occurrence: US)
  Receive Date: 20130610
  Receipt Date: 20130610
  Transmission Date: 20140414
  Serious: Yes (Other)
  Sender: FDA-Public Use
  Company Number: US-BAYER-2013-068025

PATIENT
  Sex: Female
  Weight: 76.19 kg

DRUGS (11)
  1. BETASERON [Suspect]
     Dosage: 0.3 MG, UNK
  2. ALPRAZOLAM [Concomitant]
     Dosage: 0.25 ODT
  3. ALEVE CAPLET [Concomitant]
  4. AMANTADINE [Concomitant]
  5. BACLOFEN [Concomitant]
  6. VITAMIN A [Concomitant]
  7. VITAMIN D [Concomitant]
  8. OMEPRAZOLE [Concomitant]
  9. BONIVA [Concomitant]
  10. DETROL [Concomitant]
  11. CALCIUM [Concomitant]

REACTIONS (1)
  - Urinary tract infection [Recovered/Resolved]
